FAERS Safety Report 24839068 (Version 1)
Quarter: 2025Q1

REPORT INFORMATION
  Report Type: Spontaneous
  Country: US (occurrence: US)
  Receive Date: 20250114
  Receipt Date: 20250114
  Transmission Date: 20250409
  Serious: Yes (Hospitalization)
  Sender: TORRENT PHARMA INC.
  Company Number: US-TORRENT-00013957

PATIENT
  Age: 70 Year
  Sex: Male

DRUGS (1)
  1. ESCITALOPRAM [Suspect]
     Active Substance: ESCITALOPRAM OXALATE
     Indication: Bipolar I disorder
     Route: 065
     Dates: start: 202402

REACTIONS (1)
  - Catatonia [Unknown]
